FAERS Safety Report 5420442-5 (Version None)
Quarter: 2007Q3

REPORT INFORMATION
  Report Type: 
  Country: None (occurrence: None)
  Receive Date: 20070816
  Receipt Date: 20070806
  Transmission Date: 20080115
  Serious: Yes (Other)
  Sender: FDA-Public Use
  Company Number: US020828

PATIENT
  Age: 19 Year
  Sex: Female

DRUGS (2)
  1. PROVIGIL [Suspect]
     Indication: NARCOLEPSY
     Dosage: 100 MG QD ORAL
     Route: 048
     Dates: start: 20060101, end: 20060101
  2. PROVIGIL [Suspect]
     Indication: NARCOLEPSY
     Dosage: 100 MG QD ORAL
     Route: 048
     Dates: start: 20060101, end: 20060101

REACTIONS (7)
  - BLISTER [None]
  - DRUG HYPERSENSITIVITY [None]
  - DYSPNOEA [None]
  - NASAL DISORDER [None]
  - ORAL MUCOSAL BLISTERING [None]
  - PHARYNGITIS STREPTOCOCCAL [None]
  - SWOLLEN TONGUE [None]
